FAERS Safety Report 20611415 (Version 2)
Quarter: 2022Q1

REPORT INFORMATION
  Report Type: Spontaneous
  Country: CH (occurrence: None)
  Receive Date: 20220318
  Receipt Date: 20220321
  Transmission Date: 20220423
  Serious: Yes (Hospitalization)
  Sender: FDA-Public Use
  Company Number: 2022A116619

PATIENT
  Age: 88 Year
  Sex: Female

DRUGS (15)
  1. CANDESARTAN [Suspect]
     Active Substance: CANDESARTAN
     Route: 065
     Dates: start: 2021
  2. QUETIAPINE [Suspect]
     Active Substance: QUETIAPINE
     Dosage: 15 MG, TID (15 MG, MAX 3X/D, AS NECESSARY)
     Route: 065
     Dates: start: 20211224, end: 20211224
  3. QUETIAPINE [Suspect]
     Active Substance: QUETIAPINE
     Dosage: UNK, PRN (AS NECESSARY)
     Route: 065
     Dates: start: 20211225, end: 20211225
  4. QUETIAPINE [Suspect]
     Active Substance: QUETIAPINE
     Dosage: 15 MG, PRN (15 MG, MAX 3X/D, AS NECESSARY)
     Route: 065
     Dates: start: 20220103, end: 20220103
  5. QUETIAPINE [Suspect]
     Active Substance: QUETIAPINE
     Dosage: 15 MG, PRN (15 MG, MAX 3X/D, AS NECESSARY)
     Route: 065
     Dates: start: 20220106, end: 20220106
  6. QUETIAPINE [Suspect]
     Active Substance: QUETIAPINE
     Dosage: 15 MG, PRN (15 MG, MAX 3X/D, AS NECESSARY)
     Route: 065
     Dates: start: 20220108, end: 20220108
  7. ENOXAPARIN SODIUM [Suspect]
     Active Substance: ENOXAPARIN SODIUM
     Route: 065
     Dates: start: 20211222
  8. DAFALGAN [Suspect]
     Active Substance: ACETAMINOPHEN
     Dosage: 500 MG, TID (IN RESERVE)
     Route: 065
     Dates: start: 20211223, end: 20211227
  9. AMOXICILLIN\CLAVULANATE POTASSIUM [Suspect]
     Active Substance: AMOXICILLIN\CLAVULANATE POTASSIUM
     Dosage: 1.2 G, TID
     Route: 065
     Dates: start: 20211223, end: 20211227
  10. AMOXICILLIN\CLAVULANATE POTASSIUM [Suspect]
     Active Substance: AMOXICILLIN\CLAVULANATE POTASSIUM
     Dosage: 625 MG, TID
     Route: 065
     Dates: start: 20211228, end: 20211229
  11. AMLODIPINE [Suspect]
     Active Substance: AMLODIPINE BESYLATE
     Dosage: 10.0MG UNKNOWN
     Route: 065
     Dates: start: 2021
  12. MAGNESIUM SULFATE [Concomitant]
     Active Substance: MAGNESIUM SULFATE
     Route: 065
     Dates: start: 20211222
  13. FOLIC ACID [Concomitant]
     Active Substance: FOLIC ACID
     Route: 065
     Dates: start: 20211224
  14. VICRIN D3 [Concomitant]
     Route: 065
     Dates: start: 20211223
  15. FIG FRUIT OIL\SORBITOL [Concomitant]
     Active Substance: FIG FRUIT OIL\SORBITOL
     Route: 065
     Dates: start: 20211230

REACTIONS (1)
  - Cholestasis [Not Recovered/Not Resolved]

NARRATIVE: CASE EVENT DATE: 20211227
